FAERS Safety Report 7149156-0 (Version None)
Quarter: 2010Q4

REPORT INFORMATION
  Report Type: 
  Country: None (occurrence: None)
  Receive Date: 20101209
  Receipt Date: 20101130
  Transmission Date: 20110411
  Serious: Yes (Hospitalization)
  Sender: FDA-Public Use
  Company Number: JP-ROCHE-746316

PATIENT
  Sex: Female

DRUGS (17)
  1. CAPECITABINE [Suspect]
     Indication: RECTAL CANCER METASTATIC
     Route: 048
     Dates: start: 20100430, end: 20100507
  2. CAPECITABINE [Suspect]
     Route: 048
     Dates: start: 20100512, end: 20100526
  3. CAPECITABINE [Suspect]
     Route: 048
     Dates: start: 20100616, end: 20100630
  4. CAPECITABINE [Suspect]
     Route: 048
     Dates: start: 20101013, end: 20101027
  5. CAPECITABINE [Suspect]
     Route: 048
     Dates: start: 20101105, end: 20101119
  6. BEVACIZUMAB [Suspect]
     Indication: RECTAL CANCER METASTATIC
     Route: 041
     Dates: start: 20100423, end: 20100423
  7. BEVACIZUMAB [Suspect]
     Route: 041
     Dates: start: 20100512, end: 20100512
  8. BEVACIZUMAB [Suspect]
     Route: 041
     Dates: start: 20100616, end: 20100616
  9. BEVACIZUMAB [Suspect]
     Route: 041
     Dates: start: 20101013, end: 20101013
  10. BEVACIZUMAB [Suspect]
     Route: 041
     Dates: start: 20101105, end: 20101105
  11. OXALIPLATIN [Suspect]
     Indication: RECTAL CANCER METASTATIC
     Route: 041
     Dates: start: 20100423, end: 20100423
  12. OXALIPLATIN [Suspect]
     Route: 041
     Dates: start: 20100512, end: 20100512
  13. OXALIPLATIN [Suspect]
     Route: 041
     Dates: start: 20100616, end: 20100616
  14. OXALIPLATIN [Suspect]
     Route: 041
     Dates: start: 20101013, end: 20101013
  15. OXALIPLATIN [Suspect]
     Route: 041
     Dates: start: 20101105, end: 20101105
  16. SEROTONE [Concomitant]
     Dosage: AZASETRON HYDROCHLORIDE: INTRAVENOUS NOT OTHERWISE SPECIFIED
     Route: 042
  17. DEXART [Concomitant]
     Route: 042

REACTIONS (7)
  - CYANOSIS [None]
  - DYSPNOEA [None]
  - HYPERSENSITIVITY [None]
  - NEUROPATHY PERIPHERAL [None]
  - NEUTROPHIL COUNT DECREASED [None]
  - PALMAR-PLANTAR ERYTHRODYSAESTHESIA SYNDROME [None]
  - VOMITING [None]
